FAERS Safety Report 22081942 (Version 1)
Quarter: 2023Q1

REPORT INFORMATION
  Report Type: Spontaneous
  Country: DZ (occurrence: DZ)
  Receive Date: 20230310
  Receipt Date: 20230310
  Transmission Date: 20230417
  Serious: Yes (Death, Other)
  Sender: FDA-Public Use
  Company Number: DZ-AMGEN-DZASP2023040135

PATIENT

DRUGS (2)
  1. XGEVA [Suspect]
     Active Substance: DENOSUMAB
     Indication: Plasma cell myeloma
     Dosage: UNK
     Route: 065
  2. ZOLEDRONIC ACID [Concomitant]
     Active Substance: ZOLEDRONIC ACID

REACTIONS (4)
  - Death [Fatal]
  - Plasma cell myeloma recurrent [Unknown]
  - Therapy partial responder [Unknown]
  - Unevaluable event [Unknown]
